FAERS Safety Report 21239395 (Version 1)
Quarter: 2022Q3

REPORT INFORMATION
  Report Type: Spontaneous
  Country: US (occurrence: US)
  Receive Date: 20220822
  Receipt Date: 20220822
  Transmission Date: 20221026
  Serious: No
  Sender: FDA-Public Use
  Company Number: US-SA-SAC20220818002120

PATIENT
  Age: 49 Year
  Sex: Male

DRUGS (2)
  1. KEVZARA [Suspect]
     Active Substance: SARILUMAB
     Indication: Rheumatoid arthritis
     Dosage: 200 MG, QOW
     Route: 058
     Dates: end: 2022
  2. KEVZARA [Suspect]
     Active Substance: SARILUMAB
     Indication: Sarcoidosis

REACTIONS (2)
  - Abdominal pain [Unknown]
  - Product use in unapproved indication [Unknown]
